FAERS Safety Report 6880759-4 (Version None)
Quarter: 2010Q3

REPORT INFORMATION
  Report Type: 
  Country: None (occurrence: None)
  Receive Date: 20100728
  Receipt Date: 20100722
  Transmission Date: 20110219
  Serious: Yes (Hospitalization)
  Sender: FDA-Public Use
  Company Number: IT-BAYER-201033688GPV

PATIENT
  Sex: Male

DRUGS (1)
  1. ACETYLSALICYLIC ACID SRT [Suspect]
     Indication: PRODUCT USED FOR UNKNOWN INDICATION

REACTIONS (2)
  - CEREBRAL HAEMORRHAGE TRAUMATIC [None]
  - TRAUMATIC BRAIN INJURY [None]
